FAERS Safety Report 13581242 (Version 2)
Quarter: 2017Q3

REPORT INFORMATION
  Report Type: Spontaneous
  Country: US (occurrence: US)
  Receive Date: 20170525
  Receipt Date: 20170711
  Transmission Date: 20171127
  Serious: Yes (Hospitalization, Other)
  Sender: FDA-Public Use
  Company Number: US-SMITH AND NEPHEW, INC-2017SMT00336

PATIENT
  Age: 45 Year
  Sex: Female

DRUGS (1)
  1. REGRANEX [Suspect]
     Active Substance: BECAPLERMIN
     Indication: WOUND
     Dosage: UNK
     Route: 061
     Dates: start: 20170407

REACTIONS (5)
  - Off label use [Unknown]
  - Pain in extremity [Unknown]
  - Wound infection [Unknown]
  - Malaise [Unknown]
  - Dry skin [Unknown]

NARRATIVE: CASE EVENT DATE: 20170407
